FAERS Safety Report 9163214 (Version 1)
Quarter: 2013Q1

REPORT INFORMATION
  Report Type: Spontaneous
  Country: US (occurrence: US)
  Receive Date: 20130314
  Receipt Date: 20130314
  Transmission Date: 20140127
  Serious: Yes (Death)
  Sender: FDA-Public Use
  Company Number: US-GLAXOSMITHKLINE-A1015824A

PATIENT
  Age: 74 Year
  Sex: Female

DRUGS (2)
  1. FLOLAN [Suspect]
     Indication: PRODUCT USED FOR UNKNOWN INDICATION
     Dosage: 88NGKM CONTINUOUS
     Route: 042
     Dates: start: 19990910
  2. REVATIO [Concomitant]

REACTIONS (1)
  - Pancreatic carcinoma [Fatal]
